FAERS Safety Report 7555389-1 (Version None)
Quarter: 2011Q2

REPORT INFORMATION
  Report Type: 
  Country: None (occurrence: None)
  Receive Date: 20110617
  Receipt Date: 20110608
  Transmission Date: 20111010
  Serious: Yes (Hospitalization, Other)
  Sender: FDA-Public Use
  Company Number: BR-ASTRAZENECA-2010SE42593

PATIENT
  Age: 58 Year
  Sex: Female
  Weight: 80 kg

DRUGS (8)
  1. ATACAND [Suspect]
     Indication: HYPERTENSION
     Route: 048
     Dates: start: 20040101, end: 20080101
  2. TYLENOL-500 [Concomitant]
     Indication: PAIN
     Dosage: PRN
     Route: 048
     Dates: start: 20080101
  3. LUFTAL [Concomitant]
     Indication: FLATULENCE
     Dosage: PRN
     Route: 048
     Dates: start: 20080101
  4. DRAMIN B6 [Concomitant]
     Indication: NAUSEA
     Dosage: PRN
     Route: 048
     Dates: start: 20080101
  5. ATACAND [Suspect]
     Route: 048
     Dates: start: 20040101, end: 20080101
  6. ATACAND HCT [Suspect]
     Indication: HYPERTENSION
     Dosage: 8+12.5 MG
     Route: 048
     Dates: start: 20080101
  7. METOPROLOL SUCCINATE [Suspect]
     Indication: HEART RATE INCREASED
     Route: 048
     Dates: start: 20090101
  8. OMEPRAZOLE [Concomitant]
     Indication: GASTRITIS PROPHYLAXIS
     Route: 048
     Dates: start: 20080101

REACTIONS (8)
  - HEART RATE INCREASED [None]
  - OVARIAN CANCER [None]
  - NAUSEA [None]
  - OOPHORECTOMY [None]
  - HYPERTENSION [None]
  - TONGUE DISORDER [None]
  - DRUG INEFFECTIVE [None]
  - BUCCAL MUCOSAL ROUGHENING [None]
